FAERS Safety Report 8297061-9 (Version None)
Quarter: 2012Q2

REPORT INFORMATION
  Report Type: 
  Country: None (occurrence: None)
  Receive Date: 20120417
  Receipt Date: 20120417
  Transmission Date: 20120825
  Serious: Yes (Hospitalization)
  Sender: FDA-Public Use
  Company Number: None

PATIENT
  Age: 68 Year
  Sex: Male
  Weight: 88.2 kg

DRUGS (1)
  1. SORAFENIB [Suspect]
     Dosage: 400 MG BID PO
     Route: 048
     Dates: start: 20111221, end: 20120112

REACTIONS (4)
  - DELIRIUM [None]
  - DIARRHOEA [None]
  - ABDOMINAL PAIN [None]
  - VOMITING [None]
